FAERS Safety Report 16904541 (Version 2)
Quarter: 2019Q4

REPORT INFORMATION
  Report Type: Spontaneous
  Country: US (occurrence: US)
  Receive Date: 20191010
  Receipt Date: 20191017
  Transmission Date: 20200122
  Serious: No
  Sender: FDA-Public Use
  Company Number: US-CHILTERN-US-2019-000752

PATIENT
  Sex: Male

DRUGS (5)
  1. ROCKLATAN [Suspect]
     Active Substance: LATANOPROST\NETARSUDIL MESYLATE
     Indication: PIGMENTARY GLAUCOMA
     Dosage: UNK
     Route: 047
     Dates: start: 20190606
  2. LATANOPROST. [Concomitant]
     Active Substance: LATANOPROST
     Dosage: UNKOWN
     Route: 047
  3. COSOPT [Concomitant]
     Active Substance: DORZOLAMIDE HYDROCHLORIDE\TIMOLOL MALEATE
     Dosage: UNK
     Route: 047
  4. BRIMONIDINE [Concomitant]
     Active Substance: BRIMONIDINE TARTRATE
     Dosage: UNK
     Route: 047
  5. RHOPRESSA [Suspect]
     Active Substance: NETARSUDIL MESYLATE
     Indication: PIGMENTARY GLAUCOMA
     Dosage: UNK
     Route: 047
     Dates: start: 20181220

REACTIONS (3)
  - Periorbital inflammation [Recovered/Resolved]
  - Drug hypersensitivity [Recovered/Resolved]
  - Off label use [Unknown]

NARRATIVE: CASE EVENT DATE: 20181220
